FAERS Safety Report 4486005-3 (Version None)
Quarter: 2004Q4

REPORT INFORMATION
  Report Type: 
  Country: None (occurrence: None)
  Receive Date: 20041022
  Receipt Date: 20041006
  Transmission Date: 20050328
  Serious: Yes (Death)
  Sender: FDA-Public Use
  Company Number: 2004-BP-09692RO

PATIENT
  Age: 23 Year
  Sex: Male

DRUGS (3)
  1. MORPHINE SUL TAB [Suspect]
     Dosage: IV
     Route: 042
  2. CARBON MONOXIDE (CARBON MONOXIDE) [Suspect]
  3. BARBITURATES(BARBITURATES) [Suspect]

REACTIONS (1)
  - MULTIPLE DRUG OVERDOSE [None]
